FAERS Safety Report 12313667 (Version 1)
Quarter: 2016Q2

REPORT INFORMATION
  Report Type: Spontaneous
  Country: FR (occurrence: FR)
  Receive Date: 20160428
  Receipt Date: 20160428
  Transmission Date: 20160815
  Serious: Yes (Hospitalization)
  Sender: FDA-Public Use
  Company Number: FR-PFIZER INC-2016225065

PATIENT
  Age: 63 Year
  Sex: Male

DRUGS (13)
  1. KARDEGIC [Concomitant]
     Active Substance: ASPIRIN LYSINE
     Dosage: 75 MG, 1X/DAY
  2. NICOBION [Concomitant]
     Active Substance: NIACINAMIDE
     Dosage: 1 DF, 1X/DAY
     Dates: end: 20160408
  3. PARACETAMOL [Concomitant]
     Active Substance: ACETAMINOPHEN
     Indication: PAIN
     Dosage: 1 G, 4X/DAY, IF PAIN
     Dates: end: 20160408
  4. FUSIDIC ACID [Interacting]
     Active Substance: FUSIDIC ACID
     Dosage: 500 MG, 3X/DAY
     Route: 048
     Dates: start: 20160304, end: 20160408
  5. METFORMIN [Concomitant]
     Active Substance: METFORMIN HYDROCHLORIDE
     Dosage: 850 MG, 3X/DAY
     Dates: end: 20160408
  6. PRINCI B [Concomitant]
     Active Substance: PYRIDOXINE\THIAMINE
     Dosage: 1 DF, 2X/DAY
  7. TAHOR [Suspect]
     Active Substance: ATORVASTATIN CALCIUM
     Indication: HYPERTENSION
     Dosage: 20 MG, 1X/DAY
     Route: 048
     Dates: end: 20160408
  8. LERCANIDIPINE [Concomitant]
     Active Substance: LERCANIDIPINE
     Dosage: 20 MG, 1X/DAY
  9. TAVANIC [Suspect]
     Active Substance: LEVOFLOXACIN
     Indication: OSTEITIS
     Dosage: 750 MG, 1X/DAY, IN THE MORNING
     Route: 048
     Dates: start: 20160304, end: 20160408
  10. PREVISCAN [Concomitant]
     Active Substance: FLUINDIONE
     Dosage: 0.5 DF, 1X/DAY
  11. STILNOX [Concomitant]
     Active Substance: ZOLPIDEM TARTRATE
     Dosage: 10 MG, 1X/DAY
  12. INEXIUM [Concomitant]
     Active Substance: ESOMEPRAZOLE
     Dosage: 1 DF, 1X/DAY
  13. GAVISCON [Concomitant]
     Active Substance: ALUMINUM HYDROXIDE\MAGNESIUM CARBONATE
     Dosage: 1 DF, ONE BEFORE MEAL IF NEEDED

REACTIONS (3)
  - Hepatocellular injury [Recovering/Resolving]
  - Rhabdomyolysis [Recovering/Resolving]
  - Drug interaction [Recovering/Resolving]

NARRATIVE: CASE EVENT DATE: 20160404
